FAERS Safety Report 5421907-2 (Version None)
Quarter: 2007Q3

REPORT INFORMATION
  Report Type: 
  Country: None (occurrence: None)
  Receive Date: 20070821
  Receipt Date: 20070821
  Transmission Date: 20080115
  Serious: Yes (Hospitalization)
  Sender: FDA-Public Use
  Company Number: None

PATIENT
  Sex: Female
  Weight: 70 kg

DRUGS (12)
  1. FLUOROURACIL [Suspect]
     Dosage: 15680 MG
     Dates: end: 20070803
  2. BEVACIZUMAB (RHUMAB VEGF) [Suspect]
     Dosage: 1520 MG
     Dates: end: 20070803
  3. LEUCOVORIN CALCIUM [Suspect]
     Dosage: 2800 MG
     Dates: end: 20070803
  4. ATIVAN [Concomitant]
  5. COMPAZINE [Concomitant]
  6. LEXAPRO [Concomitant]
  7. MAGNESIUM CITRATE [Concomitant]
  8. PRILOSEC [Concomitant]
  9. REGLAN [Concomitant]
  10. TYLENOL [Concomitant]
  11. VICODIN [Concomitant]
  12. VITAMIN B6 [Concomitant]

REACTIONS (5)
  - ABDOMINAL PAIN [None]
  - ABNORMAL FAECES [None]
  - NAUSEA [None]
  - ORAL INTAKE REDUCED [None]
  - URINARY TRACT INFECTION [None]
